FAERS Safety Report 20743622 (Version 2)
Quarter: 2022Q2

REPORT INFORMATION
  Report Type: Spontaneous
  Country: IN (occurrence: IN)
  Receive Date: 20220425
  Receipt Date: 20220429
  Transmission Date: 20220721
  Serious: Yes (Other)
  Sender: FDA-Public Use
  Company Number: IN-NOVARTISPH-NVSC2022IN092704

PATIENT
  Age: 76 Year
  Sex: Male

DRUGS (1)
  1. BROLUCIZUMAB [Suspect]
     Active Substance: BROLUCIZUMAB
     Indication: Retinal vein occlusion
     Dosage: 0.05 ML, QMO
     Route: 047
     Dates: start: 20220411

REACTIONS (2)
  - Endophthalmitis [Unknown]
  - Off label use [Unknown]

NARRATIVE: CASE EVENT DATE: 20220415
